FAERS Safety Report 17699347 (Version 3)
Quarter: 2020Q3

REPORT INFORMATION
  Report Type: Spontaneous
  Country: DE (occurrence: DE)
  Receive Date: 20200423
  Receipt Date: 20200914
  Transmission Date: 20201102
  Serious: Yes (Other)
  Sender: FDA-Public Use
  Company Number: DE-ROCHE-2585138

PATIENT
  Age: 33 Year
  Sex: Female
  Weight: 60 kg

DRUGS (3)
  1. DEKRISTOL [Concomitant]
     Active Substance: CHOLECALCIFEROL
  2. OCREVUS [Suspect]
     Active Substance: OCRELIZUMAB
     Indication: RELAPSING-REMITTING MULTIPLE SCLEROSIS
     Route: 042
     Dates: start: 20200311
  3. L?THYROXIN [Concomitant]
     Active Substance: LEVOTHYROXINE SODIUM

REACTIONS (3)
  - Dyspnoea exertional [Recovered/Resolved]
  - Vertebral lesion [Not Recovered/Not Resolved]
  - Palpitations [Recovered/Resolved]

NARRATIVE: CASE EVENT DATE: 20200311
